FAERS Safety Report 6698545-7 (Version None)
Quarter: 2010Q2

REPORT INFORMATION
  Report Type: 
  Country: None (occurrence: None)
  Receive Date: 20100427
  Receipt Date: 20100421
  Transmission Date: 20101027
  Serious: Yes (Hospitalization)
  Sender: FDA-Public Use
  Company Number: US-ASTRAZENECA-2010SE17900

PATIENT
  Age: 26244 Day
  Sex: Female
  Weight: 117.9 kg

DRUGS (5)
  1. SEROQUEL [Suspect]
     Indication: BIPOLAR DISORDER
     Route: 048
  2. SEROQUEL [Interacting]
     Route: 048
  3. MYSOLINE [Interacting]
     Indication: TREMOR
     Route: 048
  4. ABILIFY [Interacting]
     Indication: BIPOLAR DISORDER
     Route: 048
  5. ATIVAN [Concomitant]
     Indication: SLEEP DISORDER
     Route: 048

REACTIONS (2)
  - BIPOLAR DISORDER [None]
  - DRUG INTERACTION [None]
